FAERS Safety Report 9634196 (Version 1)
Quarter: 2013Q4

REPORT INFORMATION
  Report Type: Spontaneous
  Country: US (occurrence: US)
  Receive Date: 20131021
  Receipt Date: 20131021
  Transmission Date: 20140711
  Serious: Yes (Hospitalization)
  Sender: FDA-Public Use
  Company Number: US-PFIZER INC-2013298124

PATIENT
  Age: 14 Year
  Sex: Male
  Weight: 77.1 kg

DRUGS (1)
  1. GENOTROPIN [Suspect]
     Indication: GROWTH HORMONE DEFICIENCY
     Dosage: UNK, 1X/DAY
     Dates: start: 201208, end: 20130913

REACTIONS (1)
  - Hepatic enzyme increased [Recovered/Resolved]
